FAERS Safety Report 20671517 (Version 2)
Quarter: 2022Q2

REPORT INFORMATION
  Report Type: Other
  Country: US (occurrence: None)
  Receive Date: 20220404
  Receipt Date: 20220420
  Transmission Date: 20220720
  Serious: No
  Sender: FDA-Public Use
  Company Number: US-ROCHE-3064890

PATIENT
  Sex: Female

DRUGS (11)
  1. RITUXAN [Suspect]
     Active Substance: RITUXIMAB
     Indication: Myopathy
     Dosage: ONGOING: NO, INFUSE 1000MG INTRAVENOUSLY ON DAY(S) 1 AND DAY(S) 15 EVERY 6 MONTH(S), VIAL
     Route: 042
  2. METHOTREXATE [Concomitant]
     Active Substance: METHOTREXATE
  3. FOLIC ACID [Concomitant]
     Active Substance: FOLIC ACID
  4. PREDNISONE [Concomitant]
     Active Substance: PREDNISONE
  5. AMLODIPINE [Concomitant]
     Active Substance: AMLODIPINE BESYLATE
  6. ALENDRONATE [Concomitant]
     Active Substance: ALENDRONATE SODIUM
  7. CLOPIDOGREL [Concomitant]
     Active Substance: CLOPIDOGREL BISULFATE
  8. LOSARTAN [Concomitant]
     Active Substance: LOSARTAN
  9. METOPROLOL [Concomitant]
     Active Substance: METOPROLOL
  10. FENOFIBRATE [Concomitant]
     Active Substance: FENOFIBRATE
  11. ISMO [Concomitant]
     Active Substance: ISOSORBIDE MONONITRATE

REACTIONS (2)
  - Off label use [Unknown]
  - No adverse event [Unknown]
